FAERS Safety Report 21054104 (Version 2)
Quarter: 2022Q3

REPORT INFORMATION
  Report Type: Spontaneous
  Country: RO (occurrence: RO)
  Receive Date: 20220707
  Receipt Date: 20220719
  Transmission Date: 20221027
  Serious: Yes (Death, Life-Threatening, Other)
  Sender: FDA-Public Use
  Company Number: RO-TAKEDA-2022TUS035812

PATIENT
  Age: 64 Year
  Sex: Male

DRUGS (8)
  1. DEXAMETHASONE [Suspect]
     Active Substance: DEXAMETHASONE
     Indication: Plasma cell myeloma
     Dosage: UNK
     Route: 065
  2. DEXAMETHASONE [Suspect]
     Active Substance: DEXAMETHASONE
     Dosage: UNK
     Route: 065
  3. LENALIDOMIDE [Suspect]
     Active Substance: LENALIDOMIDE
     Indication: Plasma cell myeloma
     Dosage: UNK
     Route: 065
  4. IXAZOMIB [Suspect]
     Active Substance: IXAZOMIB
     Indication: Haemophagocytic lymphohistiocytosis
     Route: 065
  5. IXAZOMIB [Suspect]
     Active Substance: IXAZOMIB
     Indication: Acute hepatic failure
  6. CYCLOPHOSPHAMIDE;DEXAMETHASONE [Concomitant]
     Indication: Plasma cell myeloma
     Route: 065
  7. DEXAMETHASONE;LENALIDOMIDE [Concomitant]
     Indication: Acute hepatic failure
     Dosage: UNK
     Route: 065
  8. DEXAMETHASONE;LENALIDOMIDE [Concomitant]
     Indication: Haemophagocytic lymphohistiocytosis

REACTIONS (2)
  - Acute hepatic failure [Fatal]
  - Haemophagocytic lymphohistiocytosis [Fatal]
